FAERS Safety Report 6722881-9 (Version None)
Quarter: 2010Q2

REPORT INFORMATION
  Report Type: 
  Country: None (occurrence: None)
  Receive Date: 20100512
  Receipt Date: 20100512
  Transmission Date: 20101027
  Serious: Yes (Life-Threatening, Hospitalization)
  Sender: FDA-Public Use
  Company Number: None

PATIENT
  Age: 63 Year
  Sex: Female
  Weight: 71.4 kg

DRUGS (1)
  1. LENALIDOMIDE [Suspect]
     Indication: HODGKIN'S DISEASE
     Dosage: 25 MG QD PO
     Route: 048
     Dates: start: 20100401, end: 20100425

REACTIONS (5)
  - ANAEMIA [None]
  - DEEP VEIN THROMBOSIS [None]
  - NEUTROPHIL COUNT DECREASED [None]
  - PULMONARY EMBOLISM [None]
  - THROMBOCYTOPENIA [None]
